FAERS Safety Report 7830137-6 (Version None)
Quarter: 2011Q4

REPORT INFORMATION
  Report Type: 
  Country: None (occurrence: None)
  Receive Date: 20111021
  Receipt Date: 20111018
  Transmission Date: 20120403
  Serious: Yes (Death, Hospitalization)
  Sender: FDA-Public Use
  Company Number: JP-EISAI INC-E2020-05621-CLI-JP

PATIENT
  Sex: Male
  Weight: 55.1 kg

DRUGS (7)
  1. ZOLOFT [Suspect]
     Route: 048
     Dates: start: 20091215
  2. PITAVASTATIN [Suspect]
     Route: 048
  3. COLONEL (POLYCARBOPHIL CALCIUM) [Suspect]
     Dates: start: 20091017
  4. DEPAS [Concomitant]
     Route: 048
     Dates: start: 20100518, end: 20100614
  5. DEPAS [Concomitant]
     Route: 048
     Dates: start: 20100615, end: 20100629
  6. RISPERDAL [Concomitant]
     Route: 048
     Dates: start: 20100518, end: 20100614
  7. ARICEPT [Suspect]
     Route: 048
     Dates: start: 20090304, end: 20100629

REACTIONS (6)
  - HYPOPROTEINAEMIA [None]
  - DEHYDRATION [None]
  - DIARRHOEA [None]
  - SUBDURAL HAEMATOMA [None]
  - RENAL IMPAIRMENT [None]
  - PNEUMONIA [None]
